FAERS Safety Report 24666295 (Version 1)
Quarter: 2024Q4

REPORT INFORMATION
  Report Type: Spontaneous
  Country: RO (occurrence: RO)
  Receive Date: 20241126
  Receipt Date: 20241126
  Transmission Date: 20250115
  Serious: Yes (Hospitalization)
  Sender: DAIICHI
  Company Number: RO-AstraZeneca-CH-00748988A

PATIENT
  Sex: Female

DRUGS (1)
  1. TRASTUZUMAB DERUXTECAN [Suspect]
     Active Substance: TRASTUZUMAB DERUXTECAN
     Indication: HER2 positive breast cancer
     Dosage: 5.4 MILLIGRAM/KILOGRAM
     Route: 042

REACTIONS (3)
  - Pyrexia [Unknown]
  - Headache [Unknown]
  - Confusional state [Unknown]
